FAERS Safety Report 17671258 (Version 1)
Quarter: 2020Q2

REPORT INFORMATION
  Report Type: Spontaneous
  Country: US (occurrence: US)
  Receive Date: 20200415
  Receipt Date: 20200415
  Transmission Date: 20200713
  Serious: Yes (Other)
  Sender: FDA-Public Use
  Company Number: US-ABBVIE-20K-163-3363832-00

PATIENT
  Age: 29 Year
  Sex: Female

DRUGS (1)
  1. TESTOSTERONE. [Suspect]
     Active Substance: TESTOSTERONE
     Indication: TRANSGENDER HORMONAL THERAPY
     Route: 065

REACTIONS (2)
  - Atherosclerotic plaque rupture [Recovered/Resolved]
  - Ischaemia [Recovered/Resolved]
